FAERS Safety Report 9467453 (Version 1)
Quarter: 2013Q3

REPORT INFORMATION
  Report Type: Report from Study
  Country: BR (occurrence: BR)
  Receive Date: 20130821
  Receipt Date: 20130821
  Transmission Date: 20140515
  Serious: Yes (Other)
  Sender: FDA-Public Use
  Company Number: PHHY2013BR089888

PATIENT
  Age: 67 Year
  Sex: Male

DRUGS (12)
  1. EVEROLIMUS [Suspect]
     Indication: IMMUNOSUPPRESSION
     Dosage: 1.5 MG, Q12H
  2. EVEROLIMUS [Suspect]
     Dosage: UNK UKN, UNK
  3. BASILIXIMAB [Suspect]
     Dosage: UNK UKN, UNK
  4. BASILIXIMAB [Suspect]
     Dosage: UNK UKN, UNK
  5. TACROLIMUS [Suspect]
     Indication: IMMUNOSUPPRESSION
     Dosage: 0.1 MG/KG, Q12H
  6. TACROLIMUS [Suspect]
     Dosage: UNK UKN, UNK
  7. TACROLIMUS [Suspect]
     Dosage: UNK UKN, UNK
  8. PREDNISONE [Suspect]
     Indication: IMMUNOSUPPRESSION
     Dosage: 30 MG, UNK
  9. INTERLEUKIN-2 [Concomitant]
     Dosage: UNK UKN, UNK
  10. METHYLPREDNISOLONE [Concomitant]
     Dosage: UNK UKN, UNK
  11. METHYLPREDNISOLONE [Concomitant]
     Dosage: UNK UKN, UNK
  12. ALBENDAZOLE [Concomitant]
     Indication: INFECTION PROPHYLAXIS
     Dosage: UNK UKN, UNK

REACTIONS (5)
  - Renal tubular atrophy [Unknown]
  - Renal impairment [Unknown]
  - Blood creatinine increased [Unknown]
  - Hyperlipidaemia [Unknown]
  - Hypertension [Unknown]
